FAERS Safety Report 21556627 (Version 1)
Quarter: 2022Q4

REPORT INFORMATION
  Report Type: Spontaneous
  Country: AU (occurrence: AU)
  Receive Date: 20221104
  Receipt Date: 20221104
  Transmission Date: 20230112
  Serious: Yes (Other)
  Sender: FDA-Public Use
  Company Number: AU-OTSUKA AUSTRALIA PHARMACEUTICALS PTY LTD-2022_050745

PATIENT
  Age: 18 Year

DRUGS (1)
  1. ABILIFY [Suspect]
     Active Substance: ARIPIPRAZOLE
     Indication: Product used for unknown indication
     Dosage: UNK
     Route: 065

REACTIONS (3)
  - Choking sensation [Unknown]
  - Muscle spasms [Recovering/Resolving]
  - Dyskinesia [Unknown]

NARRATIVE: CASE EVENT DATE: 20220616
